FAERS Safety Report 20842156 (Version 1)
Quarter: 2022Q2

REPORT INFORMATION
  Report Type: Other
  Country: US (occurrence: None)
  Receive Date: 20220518
  Receipt Date: 20220518
  Transmission Date: 20220721
  Serious: No
  Sender: FDA-Public Use
  Company Number: US-ROCHE-2969030

PATIENT
  Age: 49 Year
  Sex: Male

DRUGS (4)
  1. VALGANCICLOVIR [Suspect]
     Active Substance: VALGANCICLOVIR
     Indication: Cytomegalovirus infection
     Route: 065
  2. ACYCLOVIR [Concomitant]
     Active Substance: ACYCLOVIR
  3. PREDNISONE [Concomitant]
     Active Substance: PREDNISONE
  4. CARAFATE [Concomitant]
     Active Substance: SUCRALFATE
     Dosage: FOUR TIMES DAILY FOR 1 WEEK

REACTIONS (2)
  - Off label use [Unknown]
  - No adverse event [Unknown]
